FAERS Safety Report 9772487 (Version 2)
Quarter: 2014Q1

REPORT INFORMATION
  Report Type: Spontaneous
  Country: DK (occurrence: None)
  Receive Date: 20131217
  Receipt Date: 20140102
  Transmission Date: 20141002
  Serious: Yes (Death)
  Sender: FDA-Public Use
  Company Number: 2070005

PATIENT
  Age: 45 Year
  Sex: Male

DRUGS (3)
  1. CALCIUM FOLINATE [Suspect]
     Indication: COLON CANCER
     Dosage: ADMINISTERED TWICE, IV
     Dates: start: 20130507, end: 20130521
  2. OXALIPLATIN [Suspect]
     Indication: COLON CANCER
     Dosage: ADMINISTERED TWICE, IV
     Dates: start: 20130507, end: 20130521
  3. FLUOROURACIL [Suspect]
     Indication: COLON CANCER
     Dosage: ADMINISTERED TWICE, IV
     Dates: start: 20130507, end: 20130521

REACTIONS (4)
  - Cardiac arrest [None]
  - Arteriosclerosis coronary artery [None]
  - Aortic arteriosclerosis [None]
  - Cardiomegaly [None]
